FAERS Safety Report 8576589-8 (Version None)
Quarter: 2012Q3

REPORT INFORMATION
  Report Type: 
  Country: None (occurrence: None)
  Receive Date: 20120725
  Receipt Date: 20120713
  Transmission Date: 20120928
  Serious: Yes (Other)
  Sender: FDA-Public Use
  Company Number: 011991

PATIENT
  Age: 24 Year
  Sex: Male

DRUGS (8)
  1. IG VENA N (IMMUNOGLOBULIN HUMAN NORMAL) [Concomitant]
  2. METHOTREXATE SODIUM [Concomitant]
  3. BUSULFEX [Suspect]
     Dosage: 0.8 MG/KG, Q6HR, INTRAVENOUS
     Route: 042
  4. FILGRASTIM (FILGRASTIM) [Concomitant]
  5. ANTI-THYMOCYTE GLOBULIN NOS [Concomitant]
  6. RITUXIMAB (RITUXIMAB) [Concomitant]
  7. CYCLOPHOSPHAMIDE [Concomitant]
  8. TACROLIMUS [Concomitant]

REACTIONS (11)
  - NO THERAPEUTIC RESPONSE [None]
  - PURPURA [None]
  - RETINAL HAEMORRHAGE [None]
  - THROMBOCYTOPENIA [None]
  - LUNG INFILTRATION [None]
  - HYPOXIA [None]
  - REFRACTORINESS TO PLATELET TRANSFUSION [None]
  - EPISTAXIS [None]
  - SCLERAL HAEMORRHAGE [None]
  - MUCOSAL HAEMORRHAGE [None]
  - SKIN HAEMORRHAGE [None]
